FAERS Safety Report 5386178-4 (Version None)
Quarter: 2007Q3

REPORT INFORMATION
  Report Type: 
  Country: None (occurrence: None)
  Receive Date: 20070710
  Receipt Date: 20070710
  Transmission Date: 20080115
  Serious: Yes (Hospitalization)
  Sender: FDA-Public Use
  Company Number: None

PATIENT
  Sex: Female
  Weight: 71 kg

DRUGS (3)
  1. CISPLATIN [Suspect]
     Dosage: 245 MG
  2. DOXORUBICIN HYDROCHLORIDE [Suspect]
     Dosage: 221 MG
  3. TAXOL [Suspect]
     Dosage: 790 MG

REACTIONS (6)
  - NAUSEA [None]
  - NEUTROPHIL COUNT DECREASED [None]
  - PYREXIA [None]
  - SMALL INTESTINAL OBSTRUCTION [None]
  - VOMITING [None]
  - WHITE BLOOD CELL COUNT DECREASED [None]
